FAERS Safety Report 9461591 (Version 2)
Quarter: 2013Q3

REPORT INFORMATION
  Report Type: Spontaneous
  Country: US (occurrence: US)
  Receive Date: 20130816
  Receipt Date: 20130902
  Transmission Date: 20140515
  Serious: Yes (Death)
  Sender: FDA-Public Use
  Company Number: US-PFIZER INC-2013237264

PATIENT
  Age: 88 Year
  Sex: Male

DRUGS (6)
  1. SUTENT [Suspect]
     Indication: RENAL CELL CARCINOMA
     Dosage: UNK
  2. DEXEDRINE [Concomitant]
     Dosage: UNK
  3. DITROPAN [Concomitant]
     Dosage: UNK
  4. OXYCODONE [Concomitant]
     Dosage: UNK
  5. PROCRIT [Concomitant]
     Dosage: UNK
  6. PROMAZINE [Concomitant]
     Dosage: UNK

REACTIONS (1)
  - Fall [Fatal]
